FAERS Safety Report 4351912-9 (Version None)
Quarter: 2004Q2

REPORT INFORMATION
  Report Type: 
  Country: None (occurrence: None)
  Receive Date: 20040503
  Receipt Date: 20040420
  Transmission Date: 20050107
  Serious: Yes (Other)
  Sender: FDA-Public Use
  Company Number: PHRM2004FR01607

PATIENT
  Age: 80 Year
  Sex: Male

DRUGS (4)
  1. DESFERAL [Suspect]
     Dosage: 3 INJECTIONS PER WEEK
  2. HYDREA [Concomitant]
  3. ANTIDEPRESSANTS [Concomitant]
  4. BLOOD CELLS, PACKED HUMAN [Concomitant]

REACTIONS (2)
  - PAPILLOEDEMA [None]
  - VISUAL ACUITY REDUCED [None]
